FAERS Safety Report 9132517 (Version 2)
Quarter: 2013Q3

REPORT INFORMATION
  Report Type: Spontaneous
  Country: US (occurrence: US)
  Receive Date: 20130208
  Receipt Date: 20130701
  Transmission Date: 20140515
  Serious: Yes (Hospitalization, Disabling, Other)
  Sender: FDA-Public Use
  Company Number: US-009507513-2011SP000347

PATIENT
  Sex: Female
  Weight: 85.73 kg

DRUGS (2)
  1. NUVARING [Suspect]
     Indication: CONTRACEPTION
     Dosage: UNK
     Route: 067
     Dates: start: 2005, end: 200812
  2. HYDROCHLOROTHIAZIDE (+) LISINOPRIL [Concomitant]
     Indication: HYPERTENSION
     Dosage: 1 DF, QD
     Dates: start: 200606

REACTIONS (6)
  - Hepatic infection [Unknown]
  - Impaired work ability [Unknown]
  - Deep vein thrombosis [Unknown]
  - Depression [Unknown]
  - Tumour rupture [Unknown]
  - Pulmonary embolism [Unknown]
